FAERS Safety Report 4459800-4 (Version None)
Quarter: 2004Q3

REPORT INFORMATION
  Report Type: 
  Country: None (occurrence: None)
  Receive Date: 20040928
  Receipt Date: 20040715
  Transmission Date: 20050211
  Serious: Yes (Other)
  Sender: FDA-Public Use
  Company Number: PHBS2004JP09597

PATIENT
  Age: 35 Year
  Sex: Male

DRUGS (4)
  1. LAMISIL [Suspect]
     Indication: NAIL TINEA
     Dosage: 125 MG/D
     Route: 048
     Dates: start: 20040419, end: 20040715
  2. MINOMYCIN [Concomitant]
     Dosage: 100 MG/D
     Route: 048
     Dates: start: 20040507, end: 20040608
  3. JUMI-HAIDOKU-TO [Suspect]
     Indication: COMEDONE
     Dosage: 7.5 G/DAY
     Route: 048
     Dates: start: 20040507, end: 20040715
  4. NIZORAL [Concomitant]
     Route: 061
     Dates: start: 20040507

REACTIONS (9)
  - ALANINE AMINOTRANSFERASE INCREASED [None]
  - ASPARTATE AMINOTRANSFERASE INCREASED [None]
  - GAMMA-GLUTAMYLTRANSFERASE INCREASED [None]
  - HAEMATOCRIT DECREASED [None]
  - HAEMOGLOBIN DECREASED [None]
  - HEPATIC FUNCTION ABNORMAL [None]
  - PLATELET COUNT DECREASED [None]
  - RED BLOOD CELL COUNT DECREASED [None]
  - WHITE BLOOD CELL COUNT DECREASED [None]
